FAERS Safety Report 24612228 (Version 1)
Quarter: 2024Q4

REPORT INFORMATION
  Report Type: Spontaneous
  Country: CN (occurrence: CN)
  Receive Date: 20241113
  Receipt Date: 20241113
  Transmission Date: 20250115
  Serious: Yes (Other)
  Sender: Alora Pharma
  Company Number: CN-VERTICAL PHARMACEUTICALS-2024ALO00522

PATIENT
  Age: 37 Year
  Sex: Female
  Weight: 65 kg

DRUGS (5)
  1. SUFENTANIL [Suspect]
     Active Substance: SUFENTANIL
     Dosage: 2 ?G
     Route: 042
     Dates: start: 20230704, end: 20230704
  2. PROPOFOL [Suspect]
     Active Substance: PROPOFOL
     Indication: Anaesthesia
     Dosage: INITIAL; UNKNOWN
     Route: 042
     Dates: start: 20230704, end: 20230704
  3. PROPOFOL [Suspect]
     Active Substance: PROPOFOL
     Dosage: 8 ML, 1X/HOUR
     Route: 042
     Dates: start: 20230704, end: 20230704
  4. MORPHINE [Suspect]
     Active Substance: MORPHINE
     Indication: Anaesthesia
     Dosage: 70 ?G
     Route: 037
     Dates: start: 20230704
  5. ROPIVACAINE [Suspect]
     Active Substance: ROPIVACAINE
     Indication: Nerve block
     Dosage: 40 ML (0.25% ROPIVACAINE)
     Dates: start: 20230704

REACTIONS (6)
  - Loss of consciousness [Recovered/Resolved]
  - Hypercapnia [Recovered/Resolved]
  - Pulmonary hypertension [Recovered/Resolved]
  - Respiratory depression [Recovered/Resolved]
  - Drug interaction [Recovered/Resolved]
  - Drug interaction [Recovered/Resolved]

NARRATIVE: CASE EVENT DATE: 20230704
